FAERS Safety Report 14793704 (Version 1)
Quarter: 2018Q2

REPORT INFORMATION
  Report Type: Spontaneous
  Country: GR (occurrence: GR)
  Receive Date: 20180423
  Receipt Date: 20180423
  Transmission Date: 20180711
  Serious: Yes (Other)
  Sender: FDA-Public Use
  Company Number: GR-GLAXOSMITHKLINE-GR2018065103

PATIENT
  Age: 35 Year
  Sex: Female

DRUGS (1)
  1. VOLTAREN [Suspect]
     Active Substance: DICLOFENAC SODIUM
     Indication: PRODUCT USED FOR UNKNOWN INDICATION
     Dosage: FROM 5 AUGUST 2015 TO 6 SEPTEMBER 2015, THE PATIENT RECEIVED 9 TABLETS OF THE SUSPECT DRUG TOTALLY.
     Route: 048

REACTIONS (2)
  - Abortion induced [Unknown]
  - Exposure during pregnancy [Unknown]
